FAERS Safety Report 5793058-9 (Version None)
Quarter: 2008Q2

REPORT INFORMATION
  Report Type: 
  Country: None (occurrence: None)
  Receive Date: 20080627
  Receipt Date: 20080603
  Transmission Date: 20081010
  Serious: Yes (Hospitalization, Disabling)
  Sender: FDA-Public Use
  Company Number: JP-ABBOTT-08P-087-0456432-00

PATIENT
  Age: 33 Year
  Sex: Female

DRUGS (4)
  1. LEUPLIN FOR INJECTION KIT [Suspect]
     Indication: UTERINE LEIOMYOMA
     Route: 058
     Dates: start: 20001201, end: 20001201
  2. LEUPLIN FOR INJECTION KIT [Suspect]
     Route: 058
     Dates: start: 20040701, end: 20040701
  3. LEUPLIN FOR INJECTION KIT [Suspect]
     Route: 058
     Dates: start: 20050801, end: 20050801
  4. LEUPLIN FOR INJECTION KIT [Suspect]
     Route: 058
     Dates: start: 20060101, end: 20060101

REACTIONS (1)
  - HAEMORRHAGIC CEREBRAL INFARCTION [None]
